FAERS Safety Report 10697596 (Version 1)
Quarter: 2015Q1

REPORT INFORMATION
  Report Type: Spontaneous
  Country: US (occurrence: None)
  Receive Date: 20150107
  Receipt Date: 20150107
  Transmission Date: 20150721
  Serious: Yes (Death)
  Sender: FDA-Public Use
  Company Number: None

PATIENT
  Age: 66 Year
  Sex: Female
  Weight: 67.5 kg

DRUGS (2)
  1. TIGECYCLINE [Suspect]
     Active Substance: TIGECYCLINE
     Indication: PNEUMONIA
     Dosage: QD, IV.
     Route: 042
     Dates: start: 20150103, end: 20150103
  2. TIGECYCLINE [Suspect]
     Active Substance: TIGECYCLINE
     Indication: RESPIRATORY FAILURE
     Dosage: QD, IV.
     Route: 042
     Dates: start: 20150103, end: 20150103

REACTIONS (1)
  - Death [None]

NARRATIVE: CASE EVENT DATE: 20150103
